FAERS Safety Report 7488539-6 (Version None)
Quarter: 2011Q2

REPORT INFORMATION
  Report Type: 
  Country: None (occurrence: None)
  Receive Date: 20110518
  Receipt Date: 20110510
  Transmission Date: 20111010
  Serious: Yes (Hospitalization)
  Sender: FDA-Public Use
  Company Number: Z0009048B

PATIENT
  Age: 53 Year
  Sex: Female
  Weight: 92.5 kg

DRUGS (4)
  1. DEXAMETHASONE [Suspect]
     Indication: LYMPHOMA
     Route: 042
     Dates: start: 20110318
  2. OFATUMUMAB [Suspect]
     Indication: LYMPHOMA
     Route: 042
     Dates: start: 20110318
  3. CYTARABINE [Suspect]
     Indication: LYMPHOMA
     Route: 042
     Dates: start: 20110319
  4. CISPLATIN [Suspect]
     Indication: LYMPHOMA
     Route: 042
     Dates: start: 20110318

REACTIONS (1)
  - FEBRILE NEUTROPENIA [None]
